FAERS Safety Report 5184206-2 (Version None)
Quarter: 2006Q4

REPORT INFORMATION
  Report Type: 
  Country: None (occurrence: None)
  Receive Date: 20061220
  Receipt Date: 20060217
  Transmission Date: 20070319
  Serious: Yes (Other)
  Sender: FDA-Public Use
  Company Number: US-GLAXOSMITHKLINE-A0594094A

PATIENT
  Age: 31 Year
  Sex: Male

DRUGS (2)
  1. NICODERM CQ [Suspect]
     Dosage: 14MG UNKNOWN
     Dates: start: 20050101
  2. NICODERM CQ [Suspect]
     Dosage: 7MG UNKNOWN
     Dates: start: 20050101

REACTIONS (5)
  - DISTURBANCE IN ATTENTION [None]
  - DRUG ABUSER [None]
  - DYSPNOEA [None]
  - FATIGUE [None]
  - NICOTINE DEPENDENCE [None]
